FAERS Safety Report 23839836 (Version 1)
Quarter: 2024Q2

REPORT INFORMATION
  Report Type: Report from Study
  Country: US (occurrence: US)
  Receive Date: 20240510
  Receipt Date: 20240510
  Transmission Date: 20240715
  Serious: Yes (Other)
  Sender: FDA-Public Use
  Company Number: US-TAKEDA-2023TUS101878

PATIENT
  Age: 56 Year
  Sex: Female
  Weight: 95 kg

DRUGS (3)
  1. VEDOLIZUMAB [Suspect]
     Active Substance: VEDOLIZUMAB
     Indication: Colitis ulcerative
     Dosage: 300 MILLIGRAM
     Route: 042
     Dates: start: 20230929
  2. IBSRELA [Concomitant]
     Active Substance: TENAPANOR HYDROCHLORIDE
     Indication: Constipation
     Dosage: UNK
  3. PREDNISONE [Concomitant]
     Active Substance: PREDNISONE
     Dosage: UNK

REACTIONS (23)
  - Colitis ulcerative [Unknown]
  - Bowen^s disease [Unknown]
  - Pain [Not Recovered/Not Resolved]
  - Taste disorder [Not Recovered/Not Resolved]
  - Glossodynia [Not Recovered/Not Resolved]
  - Parosmia [Not Recovered/Not Resolved]
  - Back injury [Not Recovered/Not Resolved]
  - Illness [Not Recovered/Not Resolved]
  - Product dose omission issue [Not Recovered/Not Resolved]
  - Sputum discoloured [Not Recovered/Not Resolved]
  - Ephelides [Unknown]
  - Suspected COVID-19 [Unknown]
  - Device physical property issue [Unknown]
  - Weight increased [Unknown]
  - Malnutrition [Unknown]
  - Ear pain [Not Recovered/Not Resolved]
  - Hypersensitivity [Unknown]
  - Erythema [Unknown]
  - Arthralgia [Not Recovered/Not Resolved]
  - Headache [Not Recovered/Not Resolved]
  - Oropharyngeal pain [Not Recovered/Not Resolved]
  - Cough [Not Recovered/Not Resolved]
  - Fatigue [Not Recovered/Not Resolved]

NARRATIVE: CASE EVENT DATE: 20231104
